FAERS Safety Report 10090617 (Version 3)
Quarter: 2014Q2

REPORT INFORMATION
  Report Type: Spontaneous
  Country: DK (occurrence: DK)
  Receive Date: 20140421
  Receipt Date: 20140527
  Transmission Date: 20141212
  Serious: Yes (Hospitalization, Other)
  Sender: FDA-Public Use
  Company Number: DK-ELI_LILLY_AND_COMPANY-DK201404004808

PATIENT
  Age: 54 Year
  Sex: Female

DRUGS (6)
  1. ZYPADHERA [Suspect]
     Indication: BIPOLAR DISORDER
     Dosage: 300 MG, 2/M
     Route: 065
     Dates: start: 20140227
  2. ZYPADHERA [Suspect]
     Dosage: 405 MG, 2/M
     Route: 065
     Dates: start: 20140326
  3. OLANZAPINE [Concomitant]
     Indication: BIPOLAR DISORDER
     Dosage: 1 DF, PRN
     Route: 048
     Dates: start: 201402
  4. SEROQUEL [Concomitant]
     Indication: BIPOLAR DISORDER
     Dosage: 1200 MG, UNKNOWN
     Dates: start: 2002
  5. LITHIUM CARBONATE [Concomitant]
     Indication: BIPOLAR DISORDER
     Dosage: 900 MG, UNKNOWN
     Dates: start: 1999
  6. ELTROXIN [Concomitant]
     Indication: TOXIC NODULAR GOITRE
     Dosage: 100 UG, UNKNOWN
     Dates: start: 1997

REACTIONS (5)
  - Mania [Unknown]
  - Fall [Unknown]
  - Altered state of consciousness [Unknown]
  - Sedation [Unknown]
  - Prescribed overdose [Unknown]
